FAERS Safety Report 9137379 (Version 1)
Quarter: 2013Q1

REPORT INFORMATION
  Report Type: Spontaneous
  Country: US (occurrence: US)
  Receive Date: 20130304
  Receipt Date: 20130304
  Transmission Date: 20140127
  Serious: No
  Sender: FDA-Public Use
  Company Number: US-ENDO PHARMACEUTICALS INC.-PERC20100135

PATIENT
  Age: 84 Year
  Sex: Female
  Weight: 68.2 kg

DRUGS (12)
  1. PERCOCET [Suspect]
     Indication: PRODUCT USED FOR UNKNOWN INDICATION
     Dosage: UNKNOWN
     Route: 048
  2. ACIDOPHILUS [Concomitant]
     Route: 065
     Dates: start: 20071005
  3. ACETYSALICYLIC ACID [Concomitant]
     Dosage: UNKNOWN
     Route: 065
  4. VITAMINS [Concomitant]
     Dosage: UNKNOWN
     Route: 065
  5. LIPITOR [Concomitant]
     Indication: BLOOD CHOLESTEROL
     Dosage: UNKNOWN
     Route: 065
  6. ATENOLOL [Concomitant]
     Dosage: UNKNOWN
     Route: 065
  7. MIRALAX [Concomitant]
     Dosage: UNKNOWN
     Route: 065
  8. LYSINE [Concomitant]
     Dosage: UNKNOWN
     Route: 065
     Dates: start: 20071005
  9. VICODIN [Concomitant]
     Dosage: UNKNOWN
     Route: 065
  10. LYRICA [Concomitant]
     Indication: HERPES ZOSTER
     Route: 065
     Dates: start: 20071004
  11. LYRICA [Concomitant]
     Indication: POST HERPETIC NEURALGIA
     Route: 065
     Dates: start: 2008
  12. METHADONE HYDROCHLORIDE [Concomitant]
     Dosage: UNKNOWN
     Route: 065

REACTIONS (1)
  - Feeling abnormal [Unknown]
